FAERS Safety Report 19735170 (Version 6)
Quarter: 2022Q4

REPORT INFORMATION
  Report Type: Spontaneous
  Country: US (occurrence: US)
  Receive Date: 20210823
  Receipt Date: 20221212
  Transmission Date: 20230112
  Serious: Yes (Other)
  Sender: FDA-Public Use
  Company Number: US-PFIZER INC-2021098675

PATIENT
  Age: 81 Year
  Sex: Female

DRUGS (3)
  1. IBRANCE [Suspect]
     Active Substance: PALBOCICLIB
     Indication: Breast cancer metastatic
     Dosage: 125 MG
  2. IBRANCE [Suspect]
     Active Substance: PALBOCICLIB
     Dosage: 75 MG
  3. FASLODEX [Concomitant]
     Active Substance: FULVESTRANT
     Dosage: UNK

REACTIONS (8)
  - Second primary malignancy [Unknown]
  - Rectal cancer [Unknown]
  - Cardiac disorder [Unknown]
  - Musculoskeletal disorder [Unknown]
  - Stomatitis [Unknown]
  - Abdominal discomfort [Unknown]
  - Weight decreased [Unknown]
  - Oxygen consumption decreased [Unknown]
